FAERS Safety Report 4872671-7 (Version None)
Quarter: 2006Q1

REPORT INFORMATION
  Report Type: 
  Country: None (occurrence: None)
  Receive Date: 20060105
  Receipt Date: 20051219
  Transmission Date: 20060701
  Serious: Yes (Hospitalization)
  Sender: FDA-Public Use
  Company Number: FR-SOLVAY-00205004256

PATIENT
  Age: 43 Year
  Sex: Female

DRUGS (3)
  1. UTROGESTAN [Suspect]
     Indication: ILL-DEFINED DISORDER
     Dosage: DAILY DOSE:  UNKNOWN
     Route: 048
     Dates: start: 19980101
  2. UTROGESTAN [Suspect]
     Dosage: DAILY DOSE:  3-6 DOSES
     Route: 048
  3. PHAEVA [Suspect]
     Indication: CONTRACEPTION
     Dosage: DAILY DOSE:  UNKNOWN
     Route: 048
     Dates: start: 19990101, end: 20020101

REACTIONS (1)
  - HEPATIC ADENOMA [None]
